FAERS Safety Report 7541486-3 (Version None)
Quarter: 2011Q2

REPORT INFORMATION
  Report Type: 
  Country: None (occurrence: None)
  Receive Date: 20110613
  Receipt Date: 20110607
  Transmission Date: 20111010
  Serious: No
  Sender: FDA-Public Use
  Company Number: US-BIOGENIDEC-2011BI021141

PATIENT
  Sex: Male

DRUGS (2)
  1. AMPYRA [Concomitant]
     Indication: PRODUCT USED FOR UNKNOWN INDICATION
  2. TYSABRI [Suspect]
     Indication: MULTIPLE SCLEROSIS
     Route: 042
     Dates: start: 20090427, end: 20110413

REACTIONS (6)
  - ASTHENIA [None]
  - EAR INFECTION [None]
  - PAIN [None]
  - HYPERHIDROSIS [None]
  - MEMORY IMPAIRMENT [None]
  - MALAISE [None]
